FAERS Safety Report 14172991 (Version 1)
Quarter: 2017Q4

REPORT INFORMATION
  Report Type: Spontaneous
  Country: US (occurrence: None)
  Receive Date: 20171108
  Receipt Date: 20171108
  Transmission Date: 20180321
  Serious: No
  Sender: FDA-Public Use
  Company Number: None

PATIENT
  Age: 34 Year
  Sex: Female

DRUGS (1)
  1. MAVYRET [Suspect]
     Active Substance: GLECAPREVIR\PIBRENTASVIR

REACTIONS (4)
  - Constipation [None]
  - Headache [None]
  - Fatigue [None]
  - Abdominal discomfort [None]

NARRATIVE: CASE EVENT DATE: 20171108
